FAERS Safety Report 7096257-1 (Version None)
Quarter: 2010Q4

REPORT INFORMATION
  Report Type: 
  Country: None (occurrence: None)
  Receive Date: 20101109
  Receipt Date: 20101109
  Transmission Date: 20110411
  Serious: Yes (Other)
  Sender: FDA-Public Use
  Company Number: None

PATIENT
  Age: 65 Year
  Sex: Female
  Weight: 70.3075 kg

DRUGS (2)
  1. VENLAFAXINE [Suspect]
     Indication: DEPRESSION
     Dosage: ONE PILL DAILY PO
     Route: 048
     Dates: start: 20100911, end: 20100924
  2. VENLAFAXINE [Suspect]
     Indication: OBSESSIVE-COMPULSIVE DISORDER
     Dosage: ONE PILL DAILY PO
     Route: 048
     Dates: start: 20100911, end: 20100924

REACTIONS (6)
  - CRYING [None]
  - DEPRESSION [None]
  - DRUG INEFFECTIVE [None]
  - HEADACHE [None]
  - MYALGIA [None]
  - PRODUCT SUBSTITUTION ISSUE [None]
